FAERS Safety Report 11296918 (Version 1)
Quarter: 2015Q3

REPORT INFORMATION
  Report Type: Spontaneous
  Country: US (occurrence: US)
  Receive Date: 20150722
  Receipt Date: 20150722
  Transmission Date: 20151125
  Serious: No
  Sender: FDA-Public Use
  Company Number: US-ELI_LILLY_AND_COMPANY-US201011001149

PATIENT
  Age: 80 Year
  Sex: Female

DRUGS (6)
  1. MECLIZINE [Concomitant]
     Active Substance: MECLIZINE\MECLIZINE HYDROCHLORIDE
  2. TYLENOL EXTRA STRENGTH [Concomitant]
     Active Substance: ACETAMINOPHEN
  3. NORVASC [Concomitant]
     Active Substance: AMLODIPINE BESYLATE
  4. ASPRO [Concomitant]
     Active Substance: ASPIRIN\SODIUM BICARBONATE
  5. LISINOPRIL + HIDROCLOROTIAZIDA [Concomitant]
     Active Substance: HYDROCHLOROTHIAZIDE\LISINOPRIL
  6. EVISTA [Suspect]
     Active Substance: RALOXIFENE HYDROCHLORIDE
     Indication: OSTEOPOROSIS
     Dosage: 60 MG, DAILY (1/D)

REACTIONS (10)
  - Vertigo [Not Recovered/Not Resolved]
  - Dysarthria [Not Recovered/Not Resolved]
  - Tension headache [Not Recovered/Not Resolved]
  - Balance disorder [Not Recovered/Not Resolved]
  - Hyperacusis [Not Recovered/Not Resolved]
  - Indifference [Unknown]
  - Eye disorder [Not Recovered/Not Resolved]
  - Nausea [Not Recovered/Not Resolved]
  - Tinnitus [Not Recovered/Not Resolved]
  - Dizziness [Not Recovered/Not Resolved]

NARRATIVE: CASE EVENT DATE: 20100803
